FAERS Safety Report 9310575 (Version 6)
Quarter: 2020Q2

REPORT INFORMATION
  Report Type: Report from Study
  Country: ES (occurrence: ES)
  Receive Date: 20130527
  Receipt Date: 20200410
  Transmission Date: 20200714
  Serious: Yes (Hospitalization, Other)
  Sender: FDA-Public Use
  Company Number: ES-AMGEN-ESPCT2013034688

PATIENT
  Age: 69 Year
  Sex: Female
  Weight: 68 kg

DRUGS (16)
  1. LEFLUNOMIDE. [Concomitant]
     Active Substance: LEFLUNOMIDE
     Dosage: 10 MILLIGRAM, QD
     Route: 048
  2. PARACETAMOL [Concomitant]
     Active Substance: ACETAMINOPHEN
     Dosage: 1 GRAM, QD
     Route: 048
     Dates: start: 201203
  3. KETAZOLAM [Concomitant]
     Active Substance: KETAZOLAM
     Dosage: 45 MILLIGRAM, (ALTERNATE DAY)
     Dates: start: 1972
  4. ESOMEPRAZOLE. [Concomitant]
     Active Substance: ESOMEPRAZOLE MAGNESIUM
     Dosage: 20 MILLIGRAM, QD
     Route: 048
  5. SERTRALINE [Concomitant]
     Active Substance: SERTRALINE HYDROCHLORIDE
     Dosage: 1 DOSAGE FORM, QD
     Route: 048
     Dates: start: 201202, end: 20121007
  6. ETANERCEPT [Suspect]
     Active Substance: ETANERCEPT
     Indication: RHEUMATOID ARTHRITIS
     Dosage: 50 MILLIGRAM, QWK
     Route: 058
     Dates: start: 20120711
  7. NAPROXENO [NAPROXEN] [Concomitant]
     Active Substance: NAPROXEN
     Dosage: 500 MILLIGRAM, QD
     Route: 048
  8. LOSARTAN/HCTZ [Concomitant]
     Active Substance: HYDROCHLOROTHIAZIDE\LOSARTAN
     Dosage: UNK UNK, QD 1 TABLET (EVERY DAY)
     Route: 048
     Dates: start: 201301
  9. AMLODIPINO [AMLODIPINE] [Concomitant]
     Dosage: 10 MILLIGRAM, QD
     Route: 048
     Dates: start: 201301
  10. MANIDIPINO [Concomitant]
     Active Substance: MANIDIPINE
     Dosage: 10 MILLIGRAM
     Route: 048
     Dates: start: 201301
  11. PNEUMOCOCCAL VACCINE POLYVALENT NOS [Concomitant]
     Active Substance: PNEUMOCOCCAL VACCINE POLYVALENT
     Dosage: UNK, (SINGLE DOSE 1 UNIT)
     Route: 030
     Dates: start: 20120716, end: 20120716
  12. SIMVASTATIN. [Concomitant]
     Active Substance: SIMVASTATIN
     Dosage: 10 MILLIGRAM, QD
     Route: 048
     Dates: start: 20121003
  13. IBANDRONATE [Concomitant]
     Active Substance: IBANDRONATE SODIUM
     Dosage: 150 MILLIGRAM, QD
     Route: 048
  14. HEPATITIS B VACCINE [Concomitant]
     Active Substance: HEPATITIS B VIRUS VACCINE
     Dosage: UNK, (SINGLE DOSE 1 UNIT)
     Route: 030
     Dates: start: 20130114, end: 20130114
  15. FOLIC ACID. [Concomitant]
     Active Substance: FOLIC ACID
     Dosage: 5 MILLIGRAM, 2 TIMES/WK
     Route: 048
  16. EBASTINE [Concomitant]
     Active Substance: EBASTINE
     Dosage: 1 DOSAGE FORM, QD
     Route: 048
     Dates: start: 20120829, end: 20120917

REACTIONS (1)
  - Hypertensive emergency [Recovered/Resolved]

NARRATIVE: CASE EVENT DATE: 20130501
